FAERS Safety Report 17552650 (Version 6)
Quarter: 2020Q3

REPORT INFORMATION
  Report Type: Report from Study
  Country: US (occurrence: US)
  Receive Date: 20200317
  Receipt Date: 20200702
  Transmission Date: 20201102
  Serious: Yes (Hospitalization)
  Sender: FDA-Public Use
  Company Number: NVSC2020US067968

PATIENT
  Age: 4 Year
  Sex: Female

DRUGS (11)
  1. INC424A [Suspect]
     Active Substance: RUXOLITINIB
     Indication: ACUTE LYMPHOCYTIC LEUKAEMIA
     Dosage: 40 MG, BID (CONSOLIDATION, INTERIM MAINTENANCE (IM)1, DELAYED INTENSIFICATION (DI) PT 1, DI PT 2, MC
     Route: 048
     Dates: start: 20190304, end: 20200210
  2. METHOTREXATE. [Suspect]
     Active Substance: METHOTREXATE
     Dosage: 16.25 MILLIGRAM (MAINTENANCE 8, 15, 22, 36, 43, 50, 57 ,64, 71, 78)
     Route: 048
     Dates: start: 20200313
  3. PREDNISONE. [Suspect]
     Active Substance: PREDNISONE
     Indication: ACUTE LYMPHOCYTIC LEUKAEMIA
     Dosage: 17.5 MILLIGRAM (MAINTENANCE CYCLE 2 DAY 1?5)
     Route: 048
     Dates: start: 20200225
  4. VINCRISTINE [Suspect]
     Active Substance: VINCRISTINE
     Indication: ACUTE LYMPHOCYTIC LEUKAEMIA
     Dosage: 1.34 MILLIGRAM (MAINTENANCE CYCLE 2 DAY 1)
     Route: 042
     Dates: start: 20200225
  5. INC424A [Suspect]
     Active Substance: RUXOLITINIB
     Dosage: 45 MG, BID (IM2 DAYS 1?10, 21?30, 41?50)
     Route: 048
     Dates: start: 20200324
  6. METHOTREXATE. [Suspect]
     Active Substance: METHOTREXATE
     Indication: ACUTE LYMPHOCYTIC LEUKAEMIA
     Dosage: 16.25 MILLIGRAM (MAINTENANCE 8, 15, 22, 36, 43, 50, 57 ,64, 71, 78)
     Route: 048
     Dates: start: 20191210, end: 20200218
  7. INC424A [Suspect]
     Active Substance: RUXOLITINIB
     Dosage: 45 MG, BID (IM2 DAYS 1?10, 21?30, 41?50)
     Route: 048
     Dates: start: 20191008, end: 20191130
  8. METHOTREXATE. [Suspect]
     Active Substance: METHOTREXATE
     Dosage: 12 MILLIGRAM (MC1D1, 29; MC2D1)
     Route: 037
     Dates: start: 20191203
  9. MERCAPTOPURINE. [Suspect]
     Active Substance: MERCAPTOPURINE
     Indication: ACUTE LYMPHOCYTIC LEUKAEMIA
     Dosage: 63 MILLIGRAM (MAINTENANCE C1 DAY 1?84)
     Route: 048
     Dates: start: 20191203, end: 20200224
  10. METHOTREXATE. [Suspect]
     Active Substance: METHOTREXATE
     Dosage: 16.25 MILLIGRAM (MAINTENANCE 8, 15, 22, 36, 43, 50, 57 ,64, 71, 78)
     Route: 048
     Dates: start: 20191210, end: 20200303
  11. MERCAPTOPURINE. [Suspect]
     Active Substance: MERCAPTOPURINE
     Dosage: 63 MILLIGRAM (MAINTENANCE C1 DAY 1?84)
     Route: 048
     Dates: start: 20200313

REACTIONS (3)
  - Skin abrasion [Recovered/Resolved]
  - Platelet count decreased [Recovered/Resolved]
  - Febrile neutropenia [Recovered/Resolved]

NARRATIVE: CASE EVENT DATE: 20200302
